FAERS Safety Report 9875863 (Version 2)
Quarter: 2014Q1

REPORT INFORMATION
  Report Type: Other
  Country: None (occurrence: US)
  Receive Date: 20140206
  Receipt Date: 20140206
  Transmission Date: 20141002
  Serious: No
  Sender: FDA-Public Use
  Company Number: US-ACORDA-ACO_35397_2013

PATIENT
  Age: 68 Year
  Sex: Male
  Weight: 89.34 kg

DRUGS (4)
  1. AMPYRA [Suspect]
     Indication: GAIT DISTURBANCE
     Dosage: 10 MG, Q 12 HRS
     Route: 048
     Dates: start: 20101129, end: 20130320
  2. AMPYRA [Suspect]
     Indication: BALANCE DISORDER
  3. AZATHIOPRINE [Concomitant]
     Indication: CROHN^S DISEASE
     Dosage: 50 MG, QD
     Route: 048
  4. MULTIVITAMIN [Concomitant]
     Indication: PRODUCT USED FOR UNKNOWN INDICATION
     Dosage: 1 TABLET, QD
     Route: 048

REACTIONS (3)
  - Fall [Recovered/Resolved]
  - Gait disturbance [Recovering/Resolving]
  - Asthenia [Unknown]
